FAERS Safety Report 5256725-1 (Version None)
Quarter: 2007Q1

REPORT INFORMATION
  Report Type: 
  Country: None (occurrence: None)
  Receive Date: 20070306
  Receipt Date: 20070223
  Transmission Date: 20070707
  Serious: Yes (Death)
  Sender: FDA-Public Use
  Company Number: HQWYE658123FEB07

PATIENT
  Age: 79 Year
  Sex: Female

DRUGS (2)
  1. HYPEN [Suspect]
     Indication: BACK PAIN
     Dosage: 400 MG
     Route: 048
     Dates: start: 20070205
  2. GASLON [Suspect]
     Dosage: 4 MG
     Route: 048
     Dates: start: 20070205

REACTIONS (1)
  - HAEMATEMESIS [None]
